FAERS Safety Report 7748202-0 (Version None)
Quarter: 2011Q3

REPORT INFORMATION
  Report Type: 
  Country: None (occurrence: None)
  Receive Date: 20110913
  Receipt Date: 20110523
  Transmission Date: 20111222
  Serious: No
  Sender: FDA-Public Use
  Company Number: JP-ELI_LILLY_AND_COMPANY-JP201105008225

PATIENT
  Age: 39 Year
  Sex: Male

DRUGS (3)
  1. CYMBALTA [Suspect]
     Indication: MAJOR DEPRESSION
     Dosage: 40 MG, QD
     Route: 048
     Dates: start: 20110328, end: 20110517
  2. LEXOTAN [Concomitant]
     Indication: MAJOR DEPRESSION
     Dosage: 12 MG, QD
     Route: 048
     Dates: start: 20110328
  3. ALPRAZOLAM [Concomitant]
     Indication: MAJOR DEPRESSION
     Dosage: 0.4 MG, QD
     Route: 048
     Dates: start: 20110328

REACTIONS (2)
  - ASPARTATE AMINOTRANSFERASE INCREASED [None]
  - BLOOD CREATINE PHOSPHOKINASE INCREASED [None]
